FAERS Safety Report 18659884 (Version 2)
Quarter: 2020Q4

REPORT INFORMATION
  Report Type: Report from Study
  Country: MX (occurrence: MX)
  Receive Date: 20201224
  Receipt Date: 20201231
  Transmission Date: 20210114
  Serious: Yes (Other)
  Sender: FDA-Public Use
  Company Number: NVSC2020MX332853

PATIENT
  Sex: Male
  Weight: 112 kg

DRUGS (9)
  1. KEPPRA [Concomitant]
     Active Substance: LEVETIRACETAM
     Indication: DRUG THERAPY
     Dosage: 2 DF, BID (IN THE MORNING AND EVENING)
     Route: 048
     Dates: start: 202009
  2. REVOLADE [Suspect]
     Active Substance: ELTROMBOPAG
     Dosage: 3 DF, QD
     Route: 048
     Dates: start: 20201123
  3. REVOLADE [Suspect]
     Active Substance: ELTROMBOPAG
     Indication: THROMBOCYTOPENIA
     Dosage: 1 DF, QD
     Route: 048
     Dates: start: 20200921
  4. METICORTEN [Concomitant]
     Active Substance: PREDNISONE
     Indication: DRUG THERAPY
     Dosage: 1 DF, QD
     Route: 048
     Dates: start: 202009
  5. QUETIAPINE. [Concomitant]
     Active Substance: QUETIAPINE
     Indication: DRUG THERAPY
     Dosage: 2 DF, QHS
     Route: 048
     Dates: start: 202009
  6. ZYVOXAM [Concomitant]
     Active Substance: LINEZOLID
     Indication: ANTIBIOTIC THERAPY
     Dosage: 2 DF, QD (2 WEEKS AGO)
     Route: 048
  7. REVOLADE [Suspect]
     Active Substance: ELTROMBOPAG
     Dosage: UNK, QD 1.5 (50 MG)
     Route: 048
     Dates: end: 20201123
  8. SERTEX [Concomitant]
     Indication: DRUG THERAPY
     Dosage: 2 DF, QD (AT THE AFTERNOON)
     Route: 048
     Dates: start: 202009
  9. REVOLADE [Suspect]
     Active Substance: ELTROMBOPAG
     Indication: ANAEMIA
     Dosage: 1.3 DF, QD (1 AND A HALF)
     Route: 048
     Dates: end: 20201123

REACTIONS (2)
  - Wrong technique in product usage process [Unknown]
  - Bacteraemia [Not Recovered/Not Resolved]
